FAERS Safety Report 12444178 (Version 1)
Quarter: 2016Q2

REPORT INFORMATION
  Report Type: Spontaneous
  Country: US (occurrence: US)
  Receive Date: 20160607
  Receipt Date: 20160607
  Transmission Date: 20160815
  Serious: No
  Sender: FDA-Public Use
  Company Number: US-SA-2016SA062850

PATIENT
  Age: 59 Year
  Sex: Female

DRUGS (2)
  1. TOUJEO [Suspect]
     Active Substance: INSULIN GLARGINE
     Dosage: DOSE:40 UNIT(S)
     Route: 065
     Dates: start: 20160224, end: 20160321
  2. SOLOSTAR [Concomitant]
     Active Substance: DEVICE
     Dates: start: 20160224

REACTIONS (1)
  - Swelling [Recovered/Resolved]
